FAERS Safety Report 9995853 (Version 1)
Quarter: 2014Q1

REPORT INFORMATION
  Report Type: Spontaneous
  Country: US (occurrence: None)
  Receive Date: 20140221
  Receipt Date: 20140221
  Transmission Date: 20141002
  Serious: Yes (Other)
  Sender: FDA-Public Use
  Company Number: 1000051857

PATIENT
  Age: 82 Year
  Sex: Female

DRUGS (6)
  1. TUDORZA PRESSAIR [Suspect]
     Indication: CHRONIC OBSTRUCTIVE PULMONARY DISEASE
     Dosage: 800 MCG (400 MCG, 2 IN 1 D), RESPIRATORY (INHALATION)
     Route: 055
     Dates: start: 20131111
  2. ASMANEX [Concomitant]
  3. FORADIL [Concomitant]
  4. PRIMIDONE [Concomitant]
  5. SINEMET [Concomitant]
  6. SYNTHROID [Concomitant]

REACTIONS (1)
  - Cough [None]
